FAERS Safety Report 8884881 (Version 2)
Quarter: 2012Q4

REPORT INFORMATION
  Report Type: 
  Country: JP (occurrence: JP)
  Receive Date: 20121102
  Receipt Date: 20121106
  Transmission Date: 20130627
  Serious: Yes (Hospitalization, Other)
  Sender: FDA-Public Use
  Company Number: JP-MERCK-1210JPN014272

PATIENT
  Age: 67 Year
  Sex: Female

DRUGS (3)
  1. BONALON [Suspect]
     Indication: OSTEOPOROSIS
     Dosage: 35 mg, qw
     Route: 048
     Dates: start: 2006, end: 201104
  2. ONEALFA [Concomitant]
     Indication: OSTEOPOROSIS
     Dosage: 0.5 Microgram, qd
     Route: 048
  3. PREDNISOLONE [Concomitant]
     Indication: SYSTEMIC LUPUS ERYTHEMATOSUS
     Dosage: 12 mg, qd
     Route: 048

REACTIONS (1)
  - Femur fracture [Not Recovered/Not Resolved]
